FAERS Safety Report 5915472-0 (Version None)
Quarter: 2008Q4

REPORT INFORMATION
  Report Type: 
  Country: None (occurrence: None)
  Receive Date: 20081010
  Receipt Date: 20080929
  Transmission Date: 20090506
  Serious: Yes (Other)
  Sender: FDA-Public Use
  Company Number: US-PFIZER INC-2007014377

PATIENT
  Sex: Male

DRUGS (3)
  1. LYRICA [Suspect]
  2. OXYCODONE HCL [Concomitant]
  3. OXYCONTIN [Concomitant]

REACTIONS (9)
  - ACTIVITIES OF DAILY LIVING IMPAIRED [None]
  - BRAIN INJURY [None]
  - CONVULSION [None]
  - ECCHYMOSIS [None]
  - ERYTHEMA [None]
  - OEDEMA PERIPHERAL [None]
  - PAIN [None]
  - PARAESTHESIA [None]
  - VISION BLURRED [None]
